FAERS Safety Report 24434583 (Version 2)
Quarter: 2025Q1

REPORT INFORMATION
  Report Type: Spontaneous
  Country: US (occurrence: US)
  Receive Date: 20241014
  Receipt Date: 20250204
  Transmission Date: 20250408
  Serious: No
  Sender: PFIZER
  Company Number: US-PFIZER INC-202400275582

PATIENT
  Age: 81 Year
  Sex: Female
  Weight: 87.528 kg

DRUGS (1)
  1. LORBRENA [Suspect]
     Active Substance: LORLATINIB
     Indication: Lung neoplasm malignant
     Dosage: 100 MG, DAILY (TAKE WHOLE WITH WATER, WITH OR WITHOUT FOOD AT THE SAME TIME EACH DAY)
     Route: 048

REACTIONS (1)
  - Neoplasm progression [Not Recovered/Not Resolved]
